FAERS Safety Report 7737180-6 (Version None)
Quarter: 2011Q3

REPORT INFORMATION
  Report Type: 
  Country: None (occurrence: None)
  Receive Date: 20110908
  Receipt Date: 20110901
  Transmission Date: 20111222
  Serious: Yes (Death)
  Sender: FDA-Public Use
  Company Number: US-ROCHE-801091

PATIENT
  Sex: Female

DRUGS (1)
  1. BONIVA [Suspect]
     Dosage: DOSE AND FREQUENCY: NOT PROVIDED
     Route: 065

REACTIONS (1)
  - DEATH [None]
